FAERS Safety Report 6334994-4 (Version None)
Quarter: 2009Q3

REPORT INFORMATION
  Report Type: 
  Country: None (occurrence: None)
  Receive Date: 20090831
  Receipt Date: 20090831
  Transmission Date: 20100115
  Serious: Yes (Other)
  Sender: FDA-Public Use
  Company Number: US-PFIZER INC-2008029798

PATIENT
  Sex: Male

DRUGS (1)
  1. DETROL LA [Suspect]
     Dates: start: 20070701

REACTIONS (7)
  - DRUG INEFFECTIVE [None]
  - HOUSE DUST ALLERGY [None]
  - INSOMNIA [None]
  - MYCOTIC ALLERGY [None]
  - NEOPLASM [None]
  - POLLAKIURIA [None]
  - SEASONAL ALLERGY [None]
